FAERS Safety Report 4703697-1 (Version None)
Quarter: 2005Q2

REPORT INFORMATION
  Report Type: 
  Country: None (occurrence: None)
  Receive Date: 20050630
  Receipt Date: 20050621
  Transmission Date: 20051028
  Serious: Yes (Hospitalization, Other)
  Sender: FDA-Public Use
  Company Number: US-BRISTOL-MYERS SQUIBB COMPANY-13011325

PATIENT
  Age: 51 Year
  Sex: Female
  Weight: 73 kg

DRUGS (6)
  1. COUMADIN [Suspect]
     Indication: HEART VALVE REPLACEMENT
     Dates: start: 20020601
  2. LIPITOR [Concomitant]
     Dates: start: 20041201
  3. FOSAMAX [Concomitant]
     Dates: start: 20041201
  4. WELLBUTRIN [Concomitant]
     Dates: start: 20040801
  5. LOVENOX [Concomitant]
     Route: 058
  6. AMOXICILLIN [Concomitant]
     Dosage: INTERMITTENTLY FOR PROCEDURES

REACTIONS (3)
  - INTERNATIONAL NORMALISED RATIO FLUCTUATION [None]
  - POLYP [None]
  - RECTAL HAEMORRHAGE [None]
